FAERS Safety Report 7651023-0 (Version None)
Quarter: 2011Q3

REPORT INFORMATION
  Report Type: 
  Country: None (occurrence: None)
  Receive Date: 20110802
  Receipt Date: 20110730
  Transmission Date: 20111222
  Serious: No
  Sender: FDA-Public Use
  Company Number: US-TEVA-294466USA

PATIENT
  Age: 17 Year
  Sex: Female
  Weight: 52.21 kg

DRUGS (1)
  1. PLAN B ONE-STEP [Suspect]
     Indication: POST COITAL CONTRACEPTION
     Dosage: 1.5 MILLIGRAM;
     Route: 048
     Dates: start: 20110724, end: 20110724

REACTIONS (5)
  - NAUSEA [None]
  - MENSTRUATION IRREGULAR [None]
  - DIZZINESS [None]
  - VOMITING [None]
  - PELVIC PAIN [None]
